FAERS Safety Report 5749962-0 (Version None)
Quarter: 2008Q2

REPORT INFORMATION
  Report Type: 
  Country: None (occurrence: None)
  Receive Date: 20080521
  Receipt Date: 20080521
  Transmission Date: 20081010
  Serious: Yes (Hospitalization, Other)
  Sender: FDA-Public Use
  Company Number: None

PATIENT
  Sex: Female
  Weight: 99.7913 kg

DRUGS (2)
  1. ACTIQ [Suspect]
     Indication: PAIN
     Dosage: 8-10 2-3 PO
     Route: 048
     Dates: start: 20050101, end: 20051231
  2. ACTIQ [Suspect]
     Indication: PAIN
     Dosage: 6-8 2-3 PO
     Route: 048
     Dates: start: 20051231, end: 20061031

REACTIONS (8)
  - DEPRESSION [None]
  - EMOTIONAL DISORDER [None]
  - FEELINGS OF WORTHLESSNESS [None]
  - GINGIVAL DISORDER [None]
  - ORAL INTAKE REDUCED [None]
  - SELF ESTEEM DECREASED [None]
  - SUICIDAL IDEATION [None]
  - TOOTH DISORDER [None]
